FAERS Safety Report 7647121-8 (Version None)
Quarter: 2011Q3

REPORT INFORMATION
  Report Type: 
  Country: None (occurrence: None)
  Receive Date: 20110801
  Receipt Date: 20110721
  Transmission Date: 20111222
  Serious: Yes (Hospitalization)
  Sender: FDA-Public Use
  Company Number: US-JNJFOC-20101206741

PATIENT
  Age: 64 Year
  Sex: Female

DRUGS (2)
  1. NAPROXEN (ALEVE) [Concomitant]
  2. NUCYNTA [Suspect]
     Indication: PROCEDURAL PAIN
     Route: 048
     Dates: start: 20101201, end: 20101201

REACTIONS (2)
  - TRANSIENT ISCHAEMIC ATTACK [None]
  - NAUSEA [None]
